FAERS Safety Report 25533683 (Version 1)
Quarter: 2025Q3

REPORT INFORMATION
  Report Type: Spontaneous
  Country: EU (occurrence: EU)
  Receive Date: 20250709
  Receipt Date: 20250709
  Transmission Date: 20251020
  Serious: Yes (Hospitalization, Other)
  Sender: AUROBINDO
  Company Number: EU-GSK-FR2025EME077219

PATIENT
  Sex: Female

DRUGS (2)
  1. TRAMADOL [Suspect]
     Active Substance: TRAMADOL
     Indication: Product used for unknown indication
     Route: 065
  2. PAROXETINE HYDROCHLORIDE [Suspect]
     Active Substance: PAROXETINE HYDROCHLORIDE
     Indication: Antidepressant therapy
     Route: 065

REACTIONS (5)
  - Suicide attempt [Unknown]
  - Malaise [Unknown]
  - Memory impairment [Unknown]
  - Muscle twitching [Unknown]
  - Extra dose administered [Unknown]
